FAERS Safety Report 4402147-2 (Version None)
Quarter: 2004Q3

REPORT INFORMATION
  Report Type: 
  Country: None (occurrence: None)
  Receive Date: 20040715
  Receipt Date: 20040707
  Transmission Date: 20050211
  Serious: Yes (Hospitalization)
  Sender: FDA-Public Use
  Company Number: HQWYE914107JUL04

PATIENT
  Age: 35 Year
  Sex: Female

DRUGS (1)
  1. TRIONETTA (LEVONORGESTREL/ETHINYL ESTRADIOL/INERT, TABLET) [Suspect]
     Indication: ORAL CONTRACEPTION
     Dosage: 1 TABLET DAILY, ORAL
     Route: 048
     Dates: start: 20040101, end: 20040301

REACTIONS (2)
  - BLOOD BILIRUBIN INCREASED [None]
  - LIVER DISORDER [None]
